FAERS Safety Report 8589849-1 (Version None)
Quarter: 2012Q3

REPORT INFORMATION
  Report Type: 
  Country: None (occurrence: None)
  Receive Date: 20120813
  Receipt Date: 20120730
  Transmission Date: 20120928
  Serious: Yes (Other)
  Sender: FDA-Public Use
  Company Number: GB-MYLANLABS-2012S1013354

PATIENT
  Age: 49 Year
  Sex: Female

DRUGS (6)
  1. MIRTAZAPINE [Suspect]
     Indication: DEPRESSIVE SYMPTOM
     Route: 048
     Dates: start: 20060101, end: 20120121
  2. ZOPICLONE [Concomitant]
     Indication: SLEEP DISORDER
     Route: 048
  3. CLOZARIL [Suspect]
     Route: 048
     Dates: start: 20120112, end: 20120117
  4. TOPIRAMATE [Suspect]
     Indication: PSYCHOTIC DISORDER
     Route: 048
     Dates: start: 20070101, end: 20120121
  5. CLOZARIL [Suspect]
     Indication: SCHIZOPHRENIA
     Route: 048
     Dates: start: 20060814, end: 20120109
  6. QUETIAPINE [Concomitant]
     Indication: PRODUCT USED FOR UNKNOWN INDICATION

REACTIONS (8)
  - SCRATCH [None]
  - TOOTHACHE [None]
  - PLATELET COUNT DECREASED [None]
  - EOSINOPHIL COUNT DECREASED [None]
  - INJURY [None]
  - NEUTROPENIA [None]
  - TOOTH INFECTION [None]
  - ROAD TRAFFIC ACCIDENT [None]
